FAERS Safety Report 16298876 (Version 2)
Quarter: 2019Q2

REPORT INFORMATION
  Report Type: Spontaneous
  Country: KR (occurrence: KR)
  Receive Date: 20190510
  Receipt Date: 20190522
  Transmission Date: 20190711
  Serious: Yes (Death, Hospitalization, Other)
  Sender: FDA-Public Use
  Company Number: KR-009507513-1904KOR004579

PATIENT
  Sex: Female

DRUGS (16)
  1. POTASSIUM CHLORIDE. [Concomitant]
     Active Substance: POTASSIUM CHLORIDE
     Dosage: POTASSIUM CHLORIDE CHOONGWAE INJ
     Dates: start: 20190314
  2. PHOSTEN [Concomitant]
     Dosage: UNK
     Dates: start: 20190314, end: 20190327
  3. CURAN [Concomitant]
     Active Substance: RANITIDINE HYDROCHLORIDE
     Dosage: STRENGTH: 50MG/2ML
     Dates: start: 20190323, end: 20190401
  4. PENIRAMIN [Concomitant]
     Dosage: STRENGTH: 4 MG/2ML/A
     Dates: start: 20190313, end: 20190328
  5. PROFA [Concomitant]
     Dosage: UNK
     Dates: start: 20190321, end: 20190323
  6. DEXTROSE. [Concomitant]
     Active Substance: DEXTROSE
     Dosage: CHOONGWAE 10% DEXTROSE INJ 100 ML
     Dates: start: 20190314
  7. ALBUMIN HUMAN [Concomitant]
     Active Substance: ALBUMIN HUMAN
     Dosage: UNK (ALBUMIN GREENCROSS)
     Dates: start: 20190317, end: 20190327
  8. FERINJECT [Concomitant]
     Active Substance: FERRIC CARBOXYMALTOSE
     Dosage: UNK
     Dates: start: 20190326, end: 20190329
  9. SODIUM CHLORIDE. [Concomitant]
     Active Substance: SODIUM CHLORIDE
     Dosage: UNK (JW NS)
     Dates: start: 20190314, end: 20190329
  10. ADENOCOR [Concomitant]
     Dosage: UNK
     Dates: start: 20190326, end: 20190328
  11. ALBUMIN HUMAN [Concomitant]
     Active Substance: ALBUMIN HUMAN
     Dosage: UNK (ALBUMIN GREENCROSS)
     Dates: start: 20190314, end: 20190319
  12. MUCOSTEN [Concomitant]
     Dosage: UNK; STRENGTH: 300 MG/2 ML
     Dates: start: 20190325, end: 20190401
  13. KEYTRUDA [Suspect]
     Active Substance: PEMBROLIZUMAB
     Indication: NON-SMALL CELL LUNG CANCER
     Dosage: UNK
     Dates: start: 20190327
  14. KEYTRUDA [Suspect]
     Active Substance: PEMBROLIZUMAB
     Dosage: UNK
     Dates: start: 20190417
  15. FENTANYL CITRATE. [Concomitant]
     Active Substance: FENTANYL CITRATE
     Dosage: FENTANYL CITRATE HANA INJ (STRENGTH: 1000 MCG/ 20 ML)
     Dates: start: 20190314
  16. OLIMEL [Concomitant]
     Active Substance: AMINO ACIDS\DEXTROSE\SOYBEAN OIL
     Dosage: UNK
     Dates: start: 20190315, end: 20190320

REACTIONS (2)
  - Adverse event [Unknown]
  - Malignant neoplasm progression [Fatal]

NARRATIVE: CASE EVENT DATE: 2019
